FAERS Safety Report 16267411 (Version 2)
Quarter: 2019Q3

REPORT INFORMATION
  Report Type: Report from Study
  Country: US (occurrence: US)
  Receive Date: 20190502
  Receipt Date: 20190808
  Transmission Date: 20191004
  Serious: No
  Sender: FDA-Public Use
  Company Number: US-AMGEN-USASP2019066998

PATIENT
  Age: 58 Year
  Sex: Female

DRUGS (1)
  1. PROLIA [Suspect]
     Active Substance: DENOSUMAB
     Indication: OSTEOPOROSIS POSTMENOPAUSAL
     Dosage: UNK
     Route: 065
     Dates: start: 201806

REACTIONS (24)
  - Abdominal distension [Unknown]
  - Toothache [Unknown]
  - Limb mass [Unknown]
  - Fatigue [Unknown]
  - Dry mouth [Unknown]
  - Dyspepsia [Unknown]
  - Hair disorder [Unknown]
  - Nail disorder [Unknown]
  - Tooth disorder [Unknown]
  - Alopecia [Unknown]
  - Dysphonia [Unknown]
  - Back pain [Unknown]
  - Food intolerance [Unknown]
  - Ageusia [Unknown]
  - Oropharyngeal discomfort [Unknown]
  - Skin lesion [Unknown]
  - Dry eye [Unknown]
  - Dry skin [Unknown]
  - Endodontic procedure [Unknown]
  - Eructation [Unknown]
  - Weight decreased [Recovering/Resolving]
  - Malaise [Unknown]
  - Decreased appetite [Recovering/Resolving]
  - Pruritus [Unknown]
